FAERS Safety Report 14989197 (Version 1)
Quarter: 2018Q2

REPORT INFORMATION
  Report Type: Spontaneous
  Country: BR (occurrence: BR)
  Receive Date: 20180608
  Receipt Date: 20180608
  Transmission Date: 20180711
  Serious: Yes (Other)
  Sender: FDA-Public Use
  Company Number: BR-009507513-1711BRA000585

PATIENT
  Age: 27 Year
  Sex: Male
  Weight: 110 kg

DRUGS (2)
  1. DIOVAN HCT [Concomitant]
     Active Substance: HYDROCHLOROTHIAZIDE\VALSARTAN
     Indication: HYPERTENSION
  2. JANUMET XR [Suspect]
     Active Substance: METFORMIN HYDROCHLORIDE\SITAGLIPTIN PHOSPHATE
     Indication: GLUCOSE TOLERANCE IMPAIRED
     Dosage: 2 TABLETS IN THE MORNING
     Route: 048
     Dates: start: 2015

REACTIONS (3)
  - Type 2 diabetes mellitus [Unknown]
  - Product quality issue [Unknown]
  - Product use in unapproved indication [Unknown]
